FAERS Safety Report 23598875 (Version 2)
Quarter: 2024Q1

REPORT INFORMATION
  Report Type: Report from Study
  Country: GB (occurrence: GB)
  Receive Date: 20240306
  Receipt Date: 20240314
  Transmission Date: 20240410
  Serious: Yes (Other)
  Sender: FDA-Public Use
  Company Number: GB-SANDOZ-SDZ2024GB023570

PATIENT
  Sex: Female

DRUGS (2)
  1. OMNITROPE [Suspect]
     Active Substance: SOMATROPIN
     Dosage: UNK
     Route: 058
  2. OMNITROPE [Suspect]
     Active Substance: SOMATROPIN
     Indication: Premature baby
     Dosage: 0.5 MG, OD
     Route: 058
     Dates: start: 20231102

REACTIONS (3)
  - Epilepsy [Not Recovered/Not Resolved]
  - Drug dose omission by device [Unknown]
  - Product use in unapproved indication [Unknown]
